FAERS Safety Report 9626812 (Version 1)
Quarter: 2013Q4

REPORT INFORMATION
  Report Type: Spontaneous
  Country: US (occurrence: GB)
  Receive Date: 20131016
  Receipt Date: 20131016
  Transmission Date: 20140711
  Serious: Yes (Hospitalization, Other)
  Sender: FDA-Public Use
  Company Number: GB-PFIZER INC-2013292330

PATIENT
  Age: 34 Year
  Sex: Female

DRUGS (5)
  1. PHENYTOIN [Suspect]
     Indication: EPILEPSY
     Dosage: 500 MG, DAILY
  2. PHENYTOIN [Suspect]
     Dosage: 300 MG, DAILY
     Dates: start: 19721116
  3. PHENYTOIN [Suspect]
     Dosage: 150 MG, DAILY
  4. PHENOBARBITAL [Suspect]
     Indication: EPILEPSY
     Dosage: 250 MG, DAILY
  5. PHENOBARBITAL [Suspect]
     Dosage: 180 MG, DAILY
     Dates: start: 19721116

REACTIONS (5)
  - Toxicity to various agents [Recovering/Resolving]
  - Anticonvulsant drug level increased [Recovering/Resolving]
  - Choreoathetosis [Recovered/Resolved]
  - Ataxia [Recovering/Resolving]
  - Dysarthria [Recovered/Resolved]
